FAERS Safety Report 15312371 (Version 2)
Quarter: 2020Q2

REPORT INFORMATION
  Report Type: Spontaneous
  Country: US (occurrence: US)
  Receive Date: 20180823
  Receipt Date: 20200521
  Transmission Date: 20200713
  Serious: Yes (Other)
  Sender: FDA-Public Use
  Company Number: US-PFIZER INC-2018336471

PATIENT
  Sex: Male

DRUGS (3)
  1. MOTRIN [Interacting]
     Active Substance: IBUPROFEN
     Dosage: 800 MG
  2. VIAGRA [Suspect]
     Active Substance: SILDENAFIL CITRATE
     Dosage: 400 MG
  3. VIAGRA [Interacting]
     Active Substance: SILDENAFIL CITRATE
     Dosage: 200 MG

REACTIONS (5)
  - Balanoposthitis [Unknown]
  - Drug interaction [Unknown]
  - Erection increased [Unknown]
  - Feeling hot [Unknown]
  - Overdose [Unknown]
